FAERS Safety Report 19576909 (Version 1)
Quarter: 2021Q3

REPORT INFORMATION
  Report Type: Spontaneous
  Country: US (occurrence: US)
  Receive Date: 20210717
  Receipt Date: 20210717
  Transmission Date: 20211014
  Serious: No
  Sender: FDA-Public Use
  Company Number: None

PATIENT
  Age: 79 Year
  Sex: Male
  Weight: 176.6 kg

DRUGS (2)
  1. CARBOPLATIN. [Suspect]
     Active Substance: CARBOPLATIN
     Dates: end: 20210701
  2. TAXOL [Suspect]
     Active Substance: PACLITAXEL
     Dates: end: 20210701

REACTIONS (3)
  - Carotid artery stenosis [None]
  - Therapy interrupted [None]
  - White blood cell count decreased [None]

NARRATIVE: CASE EVENT DATE: 20210630
